FAERS Safety Report 26041190 (Version 1)
Quarter: 2025Q4

REPORT INFORMATION
  Report Type: Spontaneous
  Country: US (occurrence: US)
  Receive Date: 20251113
  Receipt Date: 20251113
  Transmission Date: 20260117
  Serious: No
  Sender: MYLAN
  Company Number: US-MYLANLABS-2025M1090211

PATIENT
  Age: 73 Year
  Sex: Male

DRUGS (1)
  1. BREYNA [Suspect]
     Active Substance: BUDESONIDE\FORMOTEROL FUMARATE
     Indication: Asthma
     Dosage: UNK

REACTIONS (4)
  - Incorrect dose administered [Unknown]
  - Wrong technique in product usage process [Unknown]
  - Device delivery system issue [Unknown]
  - Device issue [Unknown]

NARRATIVE: CASE EVENT DATE: 20251019
